FAERS Safety Report 14315680 (Version 16)
Quarter: 2019Q2

REPORT INFORMATION
  Report Type: Report from Study
  Country: FR (occurrence: FR)
  Receive Date: 20171221
  Receipt Date: 20190617
  Transmission Date: 20190711
  Serious: Yes (Life-Threatening, Hospitalization, Other)
  Sender: FDA-Public Use
  Company Number: FR-MYLANLABS-2017M1079957

PATIENT
  Age: 57 Year
  Sex: Male
  Weight: 75 kg

DRUGS (23)
  1. OXALIPLATIN. [Suspect]
     Active Substance: OXALIPLATIN
     Indication: NEUROENDOCRINE TUMOUR
     Dosage: CYCLE (EVERY 14 DAYS)
     Route: 042
     Dates: start: 20170210, end: 20170723
  2. FOLINIC ACID [Suspect]
     Active Substance: LEUCOVORIN
     Indication: PANCREATIC NEUROENDOCRINE TUMOUR METASTATIC
     Dosage: 1 CYCLE VERY 14 DAYS
     Route: 042
     Dates: start: 20170130, end: 20170723
  3. FOLINIC ACID [Suspect]
     Active Substance: LEUCOVORIN
     Indication: NEUROENDOCRINE TUMOUR
     Dosage: CYCLIC, EVERY 14 DAYS
     Route: 042
     Dates: start: 20170201, end: 20170721
  4. CAPECITABINE. [Concomitant]
     Active Substance: CAPECITABINE
     Indication: NEOPLASM PROGRESSION
     Dosage: UNK
     Route: 048
  5. OXALIPLATIN. [Suspect]
     Active Substance: OXALIPLATIN
     Dosage: UNK, CYCLE,EVERY 14 DAYS(SIX CYCLES)
     Route: 042
     Dates: start: 201702, end: 20170721
  6. FLUOROURACIL. [Suspect]
     Active Substance: FLUOROURACIL
     Dosage: UNK, CYCLE,EVERY 14 DAYS(SIX CYCLES)
     Route: 042
     Dates: start: 201702, end: 20170721
  7. FLUOROURACIL. [Suspect]
     Active Substance: FLUOROURACIL
     Dosage: UNK, CYCLIC, EVERY 14 DAYS (SIX CYCLES)
     Route: 042
     Dates: start: 20170210, end: 20170723
  8. FOLINIC ACID [Suspect]
     Active Substance: LEUCOVORIN
     Dosage: UNK, CYCLE,EVERY 14 DAYS(SIX CYCLES)
     Route: 042
     Dates: start: 201702, end: 20170721
  9. XELODA [Concomitant]
     Active Substance: CAPECITABINE
     Indication: NEOPLASM PROGRESSION
     Dosage: UNK
     Route: 048
     Dates: start: 20171026
  10. FLUOROURACIL. [Suspect]
     Active Substance: FLUOROURACIL
     Indication: NEUROENDOCRINE TUMOUR
     Dosage: 1 CYCLE, EVERY 14 DAYS
     Route: 042
     Dates: start: 20170724, end: 201710
  11. SUTENT [Suspect]
     Active Substance: SUNITINIB MALATE
     Indication: PANCREATIC NEUROENDOCRINE TUMOUR METASTATIC
     Dosage: 37.5 MG, QD
     Dates: start: 20151207, end: 20170116
  12. FOLINIC ACID [Suspect]
     Active Substance: LEUCOVORIN
     Dosage: (1 CYCLE VERY 14 DAYS)
     Route: 042
     Dates: start: 20170724, end: 20171006
  13. FOLINIC ACID [Suspect]
     Active Substance: LEUCOVORIN
     Dosage: 1 CYCLE VERY 14 DAYS
     Route: 042
     Dates: start: 20170724, end: 20171001
  14. XELODA [Concomitant]
     Active Substance: CAPECITABINE
     Indication: CHEMOTHERAPY
  15. FOLINIC ACID [Suspect]
     Active Substance: LEUCOVORIN
     Dosage: CYCLIC, EVERY 14 DAYS (SIX CYCLES)
     Route: 042
     Dates: start: 20170210, end: 20170723
  16. OXALIPLATIN. [Suspect]
     Active Substance: OXALIPLATIN
     Dosage: UNK, CYCLIC, EVERY 14 DAYS (SIX CYCLES)
     Route: 042
     Dates: start: 20170210, end: 20170723
  17. FLUOROURACIL. [Suspect]
     Active Substance: FLUOROURACIL
     Dosage: CYCLIC, EVERY 14 DAYS
     Route: 042
     Dates: start: 20170130, end: 20170723
  18. OXALIPLATIN. [Suspect]
     Active Substance: OXALIPLATIN
     Indication: PANCREATIC NEUROENDOCRINE TUMOUR METASTATIC
     Dosage: CYCLIC, EVERY 14 DAYS
     Route: 042
     Dates: start: 20170130, end: 20170723
  19. FLUOROURACIL. [Suspect]
     Active Substance: FLUOROURACIL
     Indication: PANCREATIC NEUROENDOCRINE TUMOUR METASTATIC
     Dosage: CYCLIC, EVERY 14 DAYS
     Route: 042
     Dates: start: 20170210, end: 20170721
  20. FLUOROURACIL. [Suspect]
     Active Substance: FLUOROURACIL
     Dosage: CYCLIC, EVERY 14 DAYS
     Route: 042
     Dates: start: 20170210, end: 20170723
  21. FLUOROURACIL. [Suspect]
     Active Substance: FLUOROURACIL
     Dosage: UNK, CYCLIC (1 CYCLE EVERY 14 DAYS)
     Route: 042
     Dates: start: 20170724, end: 20171006
  22. FOLINIC ACID [Suspect]
     Active Substance: LEUCOVORIN
     Dosage: UNK, CYCLIC (1 CYCLE VERY 14 DAYS)
     Route: 042
     Dates: start: 20170724, end: 20171006
  23. INSULIN [Concomitant]
     Active Substance: INSULIN NOS
     Indication: TYPE 2 DIABETES MELLITUS
     Dosage: UNK

REACTIONS (13)
  - Blood calcium abnormal [Not Recovered/Not Resolved]
  - Endocarditis [Recovered/Resolved]
  - Small intestinal obstruction [Recovered/Resolved]
  - Vomiting [Recovered/Resolved]
  - Paraesthesia [Recovered/Resolved]
  - Hypoglycaemia [Recovered/Resolved]
  - Diarrhoea [Recovered/Resolved]
  - Hypokalaemia [Not Recovered/Not Resolved]
  - Hypercalcaemia [Not Recovered/Not Resolved]
  - Abdominal pain [Recovered/Resolved]
  - Intestinal obstruction [Unknown]
  - General physical health deterioration [Recovered/Resolved]
  - Sepsis [Recovered/Resolved]

NARRATIVE: CASE EVENT DATE: 2016
